FAERS Safety Report 7371326-7 (Version None)
Quarter: 2011Q1

REPORT INFORMATION
  Report Type: 
  Country: None (occurrence: None)
  Receive Date: 20110318
  Receipt Date: 20110318
  Transmission Date: 20110831
  Serious: Yes (Hospitalization)
  Sender: FDA-Public Use
  Company Number: None

PATIENT
  Sex: Female
  Weight: 56.4 kg

DRUGS (3)
  1. FLUOROURACIL [Suspect]
     Dosage: 1580 MG
  2. CISPLATIN [Suspect]
     Dosage: 119 MG
  3. ERBITUX [Suspect]
     Dosage: 1817 MG

REACTIONS (4)
  - DIARRHOEA [None]
  - HYPOPHAGIA [None]
  - ASTHENIA [None]
  - NAUSEA [None]
